FAERS Safety Report 20527701 (Version 5)
Quarter: 2025Q4

REPORT INFORMATION
  Report Type: Spontaneous
  Country: GB (occurrence: GB)
  Receive Date: 20220228
  Receipt Date: 20251201
  Transmission Date: 20260118
  Serious: Yes (Other)
  Sender: PFIZER
  Company Number: GB-SA-2019SA098233

PATIENT
  Age: 39 Year
  Sex: Female

DRUGS (44)
  1. ACYCLOVIR [Suspect]
     Active Substance: ACYCLOVIR
     Dosage: 200 MG, BID, PRIOR TO INFUSION
  2. ACYCLOVIR [Suspect]
     Active Substance: ACYCLOVIR
     Dosage: 200 MG, BID, PRIOR TO INFUSION
  3. ACYCLOVIR [Suspect]
     Active Substance: ACYCLOVIR
     Dosage: 400 MG, QD (200 MG, BID, PRIOR TO INFUSION)
  4. ACYCLOVIR [Suspect]
     Active Substance: ACYCLOVIR
     Dosage: 200 MG, BID, PRIOR TO INFUSION
  5. ACYCLOVIR [Suspect]
     Active Substance: ACYCLOVIR
     Dosage: 600 MG, QD (200 MG BID, PRIOR TO INFUSION)
  6. ACYCLOVIR [Suspect]
     Active Substance: ACYCLOVIR
     Dosage: 200 MG, QD
  7. ACYCLOVIR [Suspect]
     Active Substance: ACYCLOVIR
     Dosage: FREQ:8 H;200 MG, TID (EVERY 8 HOURS)
  8. ACYCLOVIR [Suspect]
     Active Substance: ACYCLOVIR
     Dosage: FREQ:8 H;200 MG, TID (EVERY 8 HOURS)
  9. ACYCLOVIR [Suspect]
     Active Substance: ACYCLOVIR
     Dosage: 200 MG, QD
  10. ACYCLOVIR [Suspect]
     Active Substance: ACYCLOVIR
     Dosage: FREQ:12 H;200 MG, BID (UNIT DOSE 600 MG)
  11. ACYCLOVIR [Suspect]
     Active Substance: ACYCLOVIR
     Dosage: 200 MG, Q8H
  12. ACYCLOVIR [Suspect]
     Active Substance: ACYCLOVIR
     Dosage: FREQ:8 H;200 MG, TID (EVERY 8 HOURS)
  13. ACYCLOVIR [Suspect]
     Active Substance: ACYCLOVIR
     Dosage: 200 MG, QD
  14. ACYCLOVIR [Suspect]
     Active Substance: ACYCLOVIR
     Dosage: FREQ:8 H;200 MG, TID (EVERY 8 HOURS)
  15. METHYLPREDNISOLONE [Suspect]
     Active Substance: METHYLPREDNISOLONE
     Dosage: 1 G (1G IN 100MLS NACL 0.9% (MONDAY, TUESDAY AND WEDNESDAY - FIRST 3 DAYS)
  16. METHYLPREDNISOLONE [Suspect]
     Active Substance: METHYLPREDNISOLONE
     Dosage: 1 G (1G IN 100MLS NACL 0.9% (MONDAY, TUESDAY AND WEDNESDAY - FIRST 3 DAYS)
  17. METHYLPREDNISOLONE [Suspect]
     Active Substance: METHYLPREDNISOLONE
     Dosage: 1 G (1G IN 100MLS NACL 0.9% (MONDAY, TUESDAY AND WEDNESDAY - FIRST 3 DAYS)
  18. METHYLPREDNISOLONE [Suspect]
     Active Substance: METHYLPREDNISOLONE
     Dosage: 1G IN 100MLS NACL 0.9% (MONDAY, TUESDAY AND WEDNESDAY- FIRST THREE DAYS
  19. METHYLPREDNISOLONE [Suspect]
     Active Substance: METHYLPREDNISOLONE
     Dosage: UNK(1G IN 100MLS NACL 0.9% (MONDAY, TUESDAY AND WEDNESDAY- FIRST 3 DAYS, PRIOR TO INFUSION)
  20. ACETAMINOPHEN [Suspect]
     Active Substance: ACETAMINOPHEN
     Dosage: 1 G, PRIOR TO INFUSION;
     Route: 048
  21. ACETAMINOPHEN [Suspect]
     Active Substance: ACETAMINOPHEN
     Dosage: 1 G, UNK
     Route: 048
  22. OMEPRAZOLE [Suspect]
     Active Substance: OMEPRAZOLE
     Indication: Product used for unknown indication
     Dosage: 20 MG, UNK
     Route: 048
  23. OMEPRAZOLE [Suspect]
     Active Substance: OMEPRAZOLE
     Dosage: 20 MG, PRIOR TO INFUSION
     Route: 048
  24. OMEPRAZOLE [Suspect]
     Active Substance: OMEPRAZOLE
     Dosage: 20MG, UNK
  25. OMEPRAZOLE [Suspect]
     Active Substance: OMEPRAZOLE
     Dosage: 20 MG, UNK
     Route: 048
  26. OMEPRAZOLE [Suspect]
     Active Substance: OMEPRAZOLE
     Dosage: 20 MG, PRIOR TO INFUSION
     Route: 048
  27. OMEPRAZOLE [Suspect]
     Active Substance: OMEPRAZOLE
     Dosage: 20 MG
     Route: 048
  28. SULFAMETHOXAZOLE AND TRIMETHOPRIM [Suspect]
     Active Substance: SULFAMETHOXAZOLE\TRIMETHOPRIM
     Dosage: 960 MG MONDAY,WEDNESDAY, AND FRIDAY, 480MG MORNING AND EVENINGS, PRIOR TO INFUSION)
  29. SULFAMETHOXAZOLE AND TRIMETHOPRIM [Suspect]
     Active Substance: SULFAMETHOXAZOLE\TRIMETHOPRIM
     Dosage: 960 MG, DAILY
  30. CHLORPHENIRAMINE MALEATE [Suspect]
     Active Substance: CHLORPHENIRAMINE MALEATE
     Dosage: 10 MG, PRIOR TO INFUSION
     Route: 042
  31. LEMTRADA [Suspect]
     Active Substance: ALEMTUZUMAB
     Indication: Multiple sclerosis
     Dosage: 12 MG
     Route: 041
     Dates: start: 20190408
  32. COTRIMOXAZOLE [Suspect]
     Active Substance: SULFAMETHOXAZOLE\TRIMETHOPRIM
     Indication: Product used for unknown indication
     Dosage: 960 MG, QD (480 MG, BID (MONDAY, WEDNESDAY, AND FRIDAY), PRIOR TO INFUSION)
  33. COTRIMOXAZOLE [Suspect]
     Active Substance: SULFAMETHOXAZOLE\TRIMETHOPRIM
     Dosage: 960 MG, QD (480 MG, BID (MONDAY, WEDNESDAY, AND FRIDAY), PRIOR TO INFUSION)
  34. COTRIMOXAZOLE [Suspect]
     Active Substance: SULFAMETHOXAZOLE\TRIMETHOPRIM
     Dosage: 960 MG (MONDAY,WEDNESDAY, AND FRIDAY, 480MG MORNING AND EVENINGS)
  35. COTRIMOXAZOLE [Suspect]
     Active Substance: SULFAMETHOXAZOLE\TRIMETHOPRIM
     Dosage: 960 MG, QD (480 MG, BID (MONDAY, WEDNESDAY, AND FRIDAY), PRIOR TO INFUSION)
  36. SODIUM CHLORIDE [Suspect]
     Active Substance: SODIUM CHLORIDE
     Indication: Medication dilution
     Dosage: 1G OF METHYLPREDNISOLONE IN 100MLS NACL 0.9% (MONDAY, TUESDAY AND WEDNESDAY- FIRST 3 DAYS
  37. TRIMETHOPRIM [Suspect]
     Active Substance: TRIMETHOPRIM
     Indication: Product used for unknown indication
     Dosage: 960 MG, QD
  38. TRIMETHOPRIM [Suspect]
     Active Substance: TRIMETHOPRIM
     Dosage: 960 MG, QD (480MG BID (MONDAY, WEDNESDAY, AND FRIDAY), PRIOR TO INFUSION)
  39. TRIMETHOPRIM [Suspect]
     Active Substance: TRIMETHOPRIM
     Dosage: 960 MG MONDAY, WEDNESDAY AND FRIDAY, 480MG MRONING AND EVENINGS)
  40. TRIMETHOPRIM [Suspect]
     Active Substance: TRIMETHOPRIM
     Dosage: 900 MG,QD
  41. TRIMETHOPRIM [Suspect]
     Active Substance: TRIMETHOPRIM
     Dosage: 960 MG, QD (480MG BID (MONDAY, WEDNESDAY, AND FRIDAY), PRIOR TO INFUSION)
  42. TRIMETHOPRIM [Suspect]
     Active Substance: TRIMETHOPRIM
     Dosage: 900 MG,QD
  43. TRIMETHOPRIM [Suspect]
     Active Substance: TRIMETHOPRIM
     Dosage: 960 MG, QD
  44. SULFAMETHOXAZOLE [Suspect]
     Active Substance: SULFAMETHOXAZOLE
     Indication: Product used for unknown indication
     Dosage: 960 MG, QD

REACTIONS (17)
  - Chest discomfort [Recovered/Resolved]
  - Cardiac flutter [Recovered/Resolved]
  - Heart rate increased [Not Recovered/Not Resolved]
  - Nausea [Not Recovered/Not Resolved]
  - Vertigo [Not Recovered/Not Resolved]
  - Somnolence [Not Recovered/Not Resolved]
  - Urinary tract infection [Not Recovered/Not Resolved]
  - Vision blurred [Recovered/Resolved]
  - Paraesthesia [Not Recovered/Not Resolved]
  - Feeling hot [Not Recovered/Not Resolved]
  - Feeling cold [Not Recovered/Not Resolved]
  - Palpitations [Recovered/Resolved]
  - Dyspnoea [Recovered/Resolved]
  - Flushing [Not Recovered/Not Resolved]
  - Hypotension [Not Recovered/Not Resolved]
  - Muscular weakness [Recovered/Resolved]
  - Headache [Not Recovered/Not Resolved]

NARRATIVE: CASE EVENT DATE: 20190401
